FAERS Safety Report 13314003 (Version 1)
Quarter: 2017Q1

REPORT INFORMATION
  Report Type: Spontaneous
  Country: US (occurrence: US)
  Receive Date: 20170309
  Receipt Date: 20170309
  Transmission Date: 20170428
  Serious: Yes (Hospitalization)
  Sender: FDA-Public Use
  Company Number: US-ELI_LILLY_AND_COMPANY-US201607011878

PATIENT
  Age: 43 Year
  Sex: Male

DRUGS (2)
  1. CYMBALTA [Suspect]
     Active Substance: DULOXETINE HYDROCHLORIDE
     Dosage: UNK UNK, UNKNOWN
     Route: 065
     Dates: end: 20111211
  2. CYMBALTA [Suspect]
     Active Substance: DULOXETINE HYDROCHLORIDE
     Indication: BACK PAIN
     Dosage: UNK UNK, UNKNOWN
     Route: 065

REACTIONS (24)
  - Affect lability [Unknown]
  - Agitation [Unknown]
  - Headache [Unknown]
  - Nasal congestion [Unknown]
  - Intentional product misuse [Unknown]
  - Lethargy [Unknown]
  - Paraesthesia [Unknown]
  - Fatigue [Unknown]
  - Dysphoria [Unknown]
  - Tremor [Unknown]
  - Hypophagia [Unknown]
  - Suicide attempt [Unknown]
  - Suicidal ideation [Unknown]
  - Nausea [Unknown]
  - Anxiety [Unknown]
  - Feeling abnormal [Unknown]
  - Irritability [Unknown]
  - Asocial behaviour [Unknown]
  - Judgement impaired [Unknown]
  - Drug withdrawal syndrome [Unknown]
  - Weight decreased [Unknown]
  - Confusional state [Unknown]
  - Dizziness [Unknown]
  - Decreased appetite [Unknown]

NARRATIVE: CASE EVENT DATE: 201112
